FAERS Safety Report 8205950-6 (Version None)
Quarter: 2012Q1

REPORT INFORMATION
  Report Type: 
  Country: None (occurrence: None)
  Receive Date: 20120309
  Receipt Date: 20120228
  Transmission Date: 20120608
  Serious: Yes (Hospitalization)
  Sender: FDA-Public Use
  Company Number: DSA_55309_2012

PATIENT
  Sex: Male

DRUGS (9)
  1. TEMESTA /00273201/ [Concomitant]
  2. LANSOPRAZOLE [Concomitant]
  3. CALCIUM CARBONATE [Concomitant]
  4. ALDALIX [Concomitant]
  5. FOZITEC /00915301/ [Concomitant]
  6. DILTIAZEM HYDROCHLORIDE [Suspect]
     Indication: PRODUCT USED FOR UNKNOWN INDICATION
     Dosage: (DF ORAL)
     Route: 048
     Dates: end: 20120110
  7. FORADIL [Concomitant]
  8. SPIRIVA [Concomitant]
  9. PREDNISONE TAB [Concomitant]

REACTIONS (5)
  - EOSINOPHILIA [None]
  - ERYTHEMA [None]
  - DRUG INEFFECTIVE [None]
  - WHITE BLOOD CELL COUNT INCREASED [None]
  - PYREXIA [None]
